FAERS Safety Report 18143619 (Version 4)
Quarter: 2021Q1

REPORT INFORMATION
  Report Type: Report from Study
  Country: DE (occurrence: DE)
  Receive Date: 20200813
  Receipt Date: 20210319
  Transmission Date: 20210419
  Serious: Yes (Hospitalization)
  Sender: FDA-Public Use
  Company Number: DE-ROCHE-2655728

PATIENT
  Age: 72 Year
  Sex: Female
  Weight: 63 kg

DRUGS (15)
  1. OXALIPLATIN. [Suspect]
     Active Substance: OXALIPLATIN
     Indication: GASTRIC CANCER
     Dosage: ON 22/JUL/2020, SHE RECEIVED LAST DOSE OF AND OXALIPLATIN (145 MG) PRIOR TO ONSET OF SERIOUS ADVERSE
     Route: 042
  2. CHLORPROTHIXEN [Concomitant]
     Active Substance: CHLORPROTHIXENE HYDROCHLORIDE
  3. IVABRADIN [Concomitant]
     Active Substance: IVABRADINE
  4. ATEZOLIZUMAB. [Suspect]
     Active Substance: ATEZOLIZUMAB
     Indication: GASTRIC CANCER
     Dosage: OVER 1 HOUR (4 CYCLES PERIOPERATIVE WITH FLOT) + DAY 1 ONCE IN 3 WEEKS: 1200 MG INTRAVENOUS OVER 1 H
     Route: 042
  5. DOCETAXEL. [Suspect]
     Active Substance: DOCETAXEL
     Indication: GASTRIC CANCER
     Dosage: ON 22/JUL/2020, SHE RECEIVED LAST DOSE OF DOCETAXEL (84 MG) PRIOR TO ONSET OF SERIOUS ADVERSE EVENT.
     Route: 042
  6. EMPAGLIFLOZIN [Concomitant]
     Active Substance: EMPAGLIFLOZIN
  7. METIMAZOL [Concomitant]
     Active Substance: METHIMAZOLE
  8. FLUOROURACIL. [Suspect]
     Active Substance: FLUOROURACIL
     Indication: GASTRIC CANCER
     Dosage: ON 22/JUL/2020, SHE RECEIVED LAST DOSE OF FLUOROURACIL (4400 MG) PRIOR TO ONSET OF SERIOUS ADVERSE E
     Route: 042
  9. METOPROLOL SUCCINATE. [Concomitant]
     Active Substance: METOPROLOL SUCCINATE
  10. PANTOPRAZOLE [Concomitant]
     Active Substance: PANTOPRAZOLE
  11. SIMVASTATIN. [Concomitant]
     Active Substance: SIMVASTATIN
  12. LEUCOVORIN. [Suspect]
     Active Substance: LEUCOVORIN
     Indication: GASTRIC CANCER
     Dosage: ON 22/JUL/2020, SHE RECEIVED LAST DOSE OF FOLINIC ACID (340 MG) PRIOR TO ONSET OF SERIOUS ADVERSE EV
     Route: 042
  13. ASPIRIN. [Concomitant]
     Active Substance: ASPIRIN
  14. AMLODIPIN [Concomitant]
     Active Substance: AMLODIPINE BESYLATE
  15. CANDESARTAN. [Concomitant]
     Active Substance: CANDESARTAN

REACTIONS (1)
  - Monoparesis [Recovered/Resolved]

NARRATIVE: CASE EVENT DATE: 20200805
